FAERS Safety Report 9820572 (Version 1)
Quarter: 2013Q4

REPORT INFORMATION
  Report Type: Spontaneous
  Country: US (occurrence: None)
  Receive Date: 20131028
  Receipt Date: 20131028
  Transmission Date: 20140711
  Serious: Yes (Other)
  Sender: FDA-Public Use
  Company Number: 2013US001721

PATIENT
  Age: 77 Year
  Sex: Female

DRUGS (1)
  1. ICLUSIG [Suspect]
     Indication: CHRONIC MYELOID LEUKAEMIA
     Route: 048
     Dates: start: 20130425

REACTIONS (7)
  - Abasia [None]
  - Visual impairment [None]
  - Insomnia [None]
  - Arthralgia [None]
  - Muscle spasms [None]
  - Headache [None]
  - Back pain [None]
